FAERS Safety Report 14698933 (Version 3)
Quarter: 2018Q2

REPORT INFORMATION
  Report Type: Spontaneous
  Country: US (occurrence: US)
  Receive Date: 20180330
  Receipt Date: 20180510
  Transmission Date: 20180711
  Serious: Yes (Other)
  Sender: FDA-Public Use
  Company Number: US-009507513-1803USA012572

PATIENT
  Age: 20 Year
  Sex: Female
  Weight: 77.1 kg

DRUGS (2)
  1. NEXPLANON [Suspect]
     Active Substance: ETONOGESTREL
     Dosage: 1 IMPLANT, UNK
     Route: 059
     Dates: start: 20180328
  2. NEXPLANON [Suspect]
     Active Substance: ETONOGESTREL
     Indication: CONTRACEPTION
     Dosage: 1 IMPLANT, Q3 YEARS, LEFT UPPER ARM
     Route: 059
     Dates: start: 20171211, end: 20180328

REACTIONS (5)
  - Device kink [Recovered/Resolved]
  - Device dislocation [Recovered/Resolved]
  - Device deployment issue [Recovered/Resolved]
  - Device breakage [Recovered/Resolved]
  - Scar [Unknown]

NARRATIVE: CASE EVENT DATE: 20171211
